FAERS Safety Report 4477805-4 (Version None)
Quarter: 2004Q4

REPORT INFORMATION
  Report Type: 
  Country: None (occurrence: None)
  Receive Date: 20041014
  Receipt Date: 20041006
  Transmission Date: 20050328
  Serious: Yes (Hospitalization, Other)
  Sender: FDA-Public Use
  Company Number: TCI2004A03798

PATIENT
  Age: 78 Year
  Sex: Male

DRUGS (7)
  1. ACTOS [Suspect]
     Indication: DIABETES MELLITUS NON-INSULIN-DEPENDENT
     Dosage: 30 MG (30 MG, 1 IN 1 D) PER ORAL
     Route: 048
     Dates: start: 20030303, end: 20040203
  2. GLUCOBAY [Suspect]
     Indication: DIABETES MELLITUS NON-INSULIN-DEPENDENT
     Dosage: 300 MG (300 MG, 1 D) PER ORAL
     Route: 048
     Dates: start: 20030203, end: 20040203
  3. GLIBENCLAMIDE [Concomitant]
  4. MOSAPRIDE CITRATE [Concomitant]
  5. ROXATIDINE ACETATE HCL [Concomitant]
  6. INDOMETHACIN [Concomitant]
  7. ATORVASTATIN CALCIUM [Concomitant]

REACTIONS (3)
  - ACUTE MYOCARDIAL INFARCTION [None]
  - CORONARY ARTERY STENOSIS [None]
  - FALL [None]
